FAERS Safety Report 6680622-8 (Version None)
Quarter: 2010Q2

REPORT INFORMATION
  Report Type: 
  Country: None (occurrence: None)
  Receive Date: 20100414
  Receipt Date: 20100405
  Transmission Date: 20101027
  Serious: No
  Sender: FDA-Public Use
  Company Number: 2009BI020897

PATIENT
  Age: 49 Year
  Sex: Female

DRUGS (1)
  1. TYSABRI [Suspect]
     Indication: MULTIPLE SCLEROSIS
     Route: 042
     Dates: start: 20090608, end: 20090708

REACTIONS (5)
  - BLINDNESS [None]
  - DYSSTASIA [None]
  - HYPERSENSITIVITY [None]
  - MIGRAINE [None]
  - VOMITING [None]
